FAERS Safety Report 12230905 (Version 1)
Quarter: 2016Q2

REPORT INFORMATION
  Report Type: Spontaneous
  Country: CH (occurrence: CH)
  Receive Date: 20160401
  Receipt Date: 20160401
  Transmission Date: 20160815
  Serious: Yes (Hospitalization, Other)
  Sender: FDA-Public Use
  Company Number: CH-INDIVIOR LIMITED-INDV-089205-2016

PATIENT
  Age: 89 Year
  Sex: Female

DRUGS (8)
  1. TEMGESIC [Suspect]
     Active Substance: BUPRENORPHINE HYDROCHLORIDE
     Indication: PAIN
     Dosage: UNK
     Route: 060
     Dates: start: 201507
  2. SINTROM [Suspect]
     Active Substance: ACENOCOUMAROL
     Indication: ATRIAL FIBRILLATION
     Dosage: UNK
     Route: 048
     Dates: start: 2014, end: 20150624
  3. REMERON [Suspect]
     Active Substance: MIRTAZAPINE
     Indication: PRODUCT USED FOR UNKNOWN INDICATION
     Dosage: 15MG, QD
     Route: 065
     Dates: start: 201507
  4. XANAX [Suspect]
     Active Substance: ALPRAZOLAM
     Dosage: 0.125MG, 4 TIMES A DAY
     Route: 048
     Dates: start: 2015
  5. TRANSTEC [Suspect]
     Active Substance: BUPRENORPHINE
     Indication: PRODUCT USED FOR UNKNOWN INDICATION
     Dosage: 70?G, ONE PER 96 HOURS
     Route: 062
  6. XANAX [Suspect]
     Active Substance: ALPRAZOLAM
     Indication: PRODUCT USED FOR UNKNOWN INDICATION
     Dosage: UNK
     Route: 048
     Dates: start: 2014
  7. ROCEPHINE [Suspect]
     Active Substance: CEFTRIAXONE SODIUM
     Indication: URINARY TRACT INFECTION
     Dosage: UNK
     Route: 042
     Dates: start: 201507, end: 201507
  8. LYRICA [Suspect]
     Active Substance: PREGABALIN
     Indication: PAIN
     Dosage: 50MG, 2 TIMES PER DAY
     Route: 065
     Dates: start: 201507

REACTIONS (6)
  - Confusional state [Recovered/Resolved]
  - Periprosthetic fracture [Unknown]
  - Clostridium difficile colitis [Recovered/Resolved]
  - Fall [Recovered/Resolved]
  - Hallucination, visual [Unknown]
  - Traumatic haematoma [Recovered/Resolved]

NARRATIVE: CASE EVENT DATE: 2015
